FAERS Safety Report 13664598 (Version 1)
Quarter: 2017Q2

REPORT INFORMATION
  Report Type: Spontaneous
  Country: US (occurrence: US)
  Receive Date: 20170619
  Receipt Date: 20170619
  Transmission Date: 20170830
  Serious: Yes (Other)
  Sender: FDA-Public Use
  Company Number: US-GLAXOSMITHKLINE-US2017089419

PATIENT
  Age: 66 Year
  Sex: Male

DRUGS (2)
  1. VENTOLIN HFA [Suspect]
     Active Substance: ALBUTEROL SULFATE
     Indication: DYSPNOEA
     Dosage: 2 PUFF(S), PRN
  2. VENTOLIN HFA [Suspect]
     Active Substance: ALBUTEROL SULFATE
     Indication: PNEUMONIA

REACTIONS (6)
  - Pulmonary mycosis [Unknown]
  - Chest X-ray [Unknown]
  - Environmental exposure [Unknown]
  - Product cleaning inadequate [Unknown]
  - Biopsy lung [Unknown]
  - Device use error [Unknown]

NARRATIVE: CASE EVENT DATE: 201610
